FAERS Safety Report 13444982 (Version 2)
Quarter: 2017Q2

REPORT INFORMATION
  Report Type: Report from Study
  Country: US (occurrence: US)
  Receive Date: 20170414
  Receipt Date: 20170421
  Transmission Date: 20170830
  Serious: Yes (Life-Threatening)
  Sender: FDA-Public Use
  Company Number: PHHO2017US006633

PATIENT

DRUGS (2)
  1. GSK2141795 [Suspect]
     Active Substance: UPROSERTIB
     Indication: NEOPLASM MALIGNANT
     Route: 065
  2. DABRAFENIB [Suspect]
     Active Substance: DABRAFENIB
     Indication: NEOPLASM MALIGNANT
     Route: 065

REACTIONS (1)
  - Blindness [Unknown]
